FAERS Safety Report 5787504-4 (Version None)
Quarter: 2008Q2

REPORT INFORMATION
  Report Type: 
  Country: None (occurrence: None)
  Receive Date: 20080625
  Receipt Date: 20071023
  Transmission Date: 20081010
  Serious: No
  Sender: FDA-Public Use
  Company Number: US-ASTRAZENECA-2007UW24744

PATIENT
  Sex: Female

DRUGS (1)
  1. PULMICORT-100 [Suspect]
     Dosage: TWO DAYS
     Route: 055
     Dates: start: 20071001

REACTIONS (1)
  - ASTHMA [None]
